FAERS Safety Report 10150706 (Version 1)
Quarter: 2014Q2

REPORT INFORMATION
  Report Type: Spontaneous
  Country: GB (occurrence: GB)
  Receive Date: 20140502
  Receipt Date: 20140502
  Transmission Date: 20141212
  Serious: Yes (Hospitalization, Other)
  Sender: FDA-Public Use
  Company Number: GB-BRISTOL-MYERS SQUIBB COMPANY-20669123

PATIENT
  Age: 85 Year
  Sex: Female

DRUGS (3)
  1. ELIQUIS [Suspect]
     Route: 048
     Dates: start: 20140110, end: 20140411
  2. ALENDRONIC ACID [Concomitant]
  3. BISOPROLOL [Concomitant]

REACTIONS (4)
  - Erythema multiforme [Unknown]
  - Diarrhoea [Unknown]
  - Vomiting [Unknown]
  - Malaise [Unknown]
